FAERS Safety Report 13362494 (Version 1)
Quarter: 2017Q1

REPORT INFORMATION
  Report Type: Spontaneous
  Country: US (occurrence: US)
  Receive Date: 20170323
  Receipt Date: 20170323
  Transmission Date: 20170429
  Serious: No
  Sender: FDA-Public Use
  Company Number: US-PFIZER INC-2017121313

PATIENT
  Sex: Female

DRUGS (4)
  1. LYRICA [Suspect]
     Active Substance: PREGABALIN
     Indication: NERVE INJURY
     Dosage: 75 MG, 2X/DAY
  2. HYDROCODONE [Suspect]
     Active Substance: HYDROCODONE
     Indication: PAIN
     Dosage: 5 MG, 4X/DAY
  3. LYRICA [Suspect]
     Active Substance: PREGABALIN
     Indication: PAIN IN EXTREMITY
  4. OXYCODONE [Suspect]
     Active Substance: OXYCODONE
     Indication: PAIN
     Dosage: 5 MG, 3X/DAY

REACTIONS (2)
  - Product use issue [Unknown]
  - Tremor [Unknown]
